FAERS Safety Report 11073468 (Version 1)
Quarter: 2015Q2

REPORT INFORMATION
  Report Type: Spontaneous
  Country: CH (occurrence: CH)
  Receive Date: 20150428
  Receipt Date: 20150428
  Transmission Date: 20150821
  Serious: Yes (Hospitalization, Other)
  Sender: FDA-Public Use
  Company Number: CH-TEVA-556058ISR

PATIENT
  Age: 75 Year
  Sex: Male

DRUGS (3)
  1. VALIUM [Interacting]
     Active Substance: DIAZEPAM
     Indication: ALCOHOL WITHDRAWAL SYNDROME
     Dosage: 20 MILLIGRAM DAILY;
     Route: 065
     Dates: start: 20141204, end: 20141205
  2. VALIUM [Interacting]
     Active Substance: DIAZEPAM
     Route: 065
     Dates: start: 2014, end: 2014
  3. FENTANYL-MEPHA MATRIXPFLASTER 50MCG/HR [Suspect]
     Active Substance: FENTANYL
     Indication: PAIN
     Dosage: .3333 DOSAGE FORMS DAILY; USED SINCE UNSPECIFIED YEARS
     Route: 062

REACTIONS (6)
  - Miosis [Recovered/Resolved]
  - Drug interaction [Unknown]
  - Respiratory depression [Recovered/Resolved]
  - Liver function test abnormal [Unknown]
  - Toxicity to various agents [Recovered/Resolved]
  - Somnolence [Recovered/Resolved]

NARRATIVE: CASE EVENT DATE: 20141205
